FAERS Safety Report 5684485-9 (Version None)
Quarter: 2008Q1

REPORT INFORMATION
  Report Type: 
  Country: None (occurrence: None)
  Receive Date: 20080328
  Receipt Date: 20080321
  Transmission Date: 20080703
  Serious: Yes (Hospitalization, Other)
  Sender: FDA-Public Use
  Company Number: PHHO2008FR01231

PATIENT
  Age: 58 Year
  Sex: Male

DRUGS (15)
  1. METHOTREXATE [Suspect]
  2. ARACYTINE [Suspect]
  3. DEXAMETHASONE TAB [Suspect]
     Dosage: 40 MG, QD
     Route: 048
     Dates: start: 20071204, end: 20071217
  4. VINCRISTINE [Suspect]
     Indication: ACUTE LYMPHOCYTIC LEUKAEMIA
  5. DOXORUBICIN HCL [Suspect]
  6. ENDOXAN [Suspect]
     Indication: ACUTE LYMPHOCYTIC LEUKAEMIA
  7. NEULASTA [Concomitant]
  8. ALLOPURINOL [Concomitant]
  9. NEXIUM [Concomitant]
  10. HUMALOG [Concomitant]
  11. LANTUS [Concomitant]
  12. ALPRAZOLAM [Concomitant]
  13. FUROSEMIDE [Concomitant]
  14. IMATINIB [Suspect]
     Indication: ACUTE LYMPHOCYTIC LEUKAEMIA
     Dosage: 600 MG, QD
     Route: 048
     Dates: start: 20071204, end: 20071217
  15. IMATINIB [Suspect]
     Route: 048
     Dates: end: 20071227

REACTIONS (8)
  - CARDIAC FAILURE [None]
  - DILATATION VENTRICULAR [None]
  - EJECTION FRACTION DECREASED [None]
  - HYPERTROPHIC CARDIOMYOPATHY [None]
  - LEFT ATRIAL DILATATION [None]
  - PERICARDIAL EFFUSION [None]
  - PULMONARY HYPERTENSION [None]
  - RESPIRATORY FAILURE [None]
